FAERS Safety Report 23371310 (Version 7)
Quarter: 2025Q4

REPORT INFORMATION
  Report Type: Report from Study
  Country: US (occurrence: US)
  Receive Date: 20240105
  Receipt Date: 20251229
  Transmission Date: 20260117
  Serious: Yes (Other)
  Sender: PFIZER
  Company Number: US-PFIZER INC-PV202300209260

PATIENT
  Age: 69 Year
  Sex: Female
  Weight: 68.04 kg

DRUGS (1)
  1. DEPO-ESTRADIOL [Suspect]
     Active Substance: ESTRADIOL CYPIONATE
     Indication: Oestrogen therapy
     Dosage: UNK, MONTHLY

REACTIONS (3)
  - Hysterectomy [Unknown]
  - Post-traumatic stress disorder [Unknown]
  - Pancreatic disorder [Unknown]
